FAERS Safety Report 7401473-2 (Version None)
Quarter: 2011Q2

REPORT INFORMATION
  Report Type: 
  Country: None (occurrence: None)
  Receive Date: 20110408
  Receipt Date: 20110405
  Transmission Date: 20111010
  Serious: Yes (Other)
  Sender: FDA-Public Use
  Company Number: AU-BRISTOL-MYERS SQUIBB COMPANY-15650898

PATIENT
  Age: 30 Year
  Sex: Male

DRUGS (5)
  1. DOXORUBICIN [Suspect]
     Indication: NON-HODGKIN'S LYMPHOMA
     Route: 042
  2. VINCRISTINE [Suspect]
     Indication: NON-HODGKIN'S LYMPHOMA
     Dosage: MAXIMUM DOSE 2MG (ON DAY 8,15 AND 22)
     Route: 042
  3. CYCLOPHOSPHAMIDE [Suspect]
     Indication: NON-HODGKIN'S LYMPHOMA
     Dosage: IV FOR FIRST 3 DAYS; FOR FURTHER 4 DAYS AS ORAL CYCLOPHOSPHAMIDE 300MG/M2 DAILY
     Route: 042
  4. TENIPOSIDE [Suspect]
     Indication: NON-HODGKIN'S LYMPHOMA
     Dosage: 1 DF = 100G/M2
     Route: 042
  5. METHOTREXATE [Suspect]
     Indication: NON-HODGKIN'S LYMPHOMA
     Dosage: ON DAY 8
     Route: 042

REACTIONS (1)
  - NEUROTOXICITY [None]
